FAERS Safety Report 20835153 (Version 1)
Quarter: 2022Q2

REPORT INFORMATION
  Report Type: Spontaneous
  Country: US (occurrence: US)
  Receive Date: 20220516
  Receipt Date: 20220516
  Transmission Date: 20220721
  Serious: No
  Sender: FDA-Public Use
  Company Number: US-SA-SAC20220512001576

PATIENT
  Age: 63 Year
  Sex: Female

DRUGS (3)
  1. DUPIXENT [Suspect]
     Active Substance: DUPILUMAB
     Dosage: 300 MG
     Route: 058
  2. BRAFTOVI [Suspect]
     Active Substance: ENCORAFENIB
  3. MEKTOVI [Suspect]
     Active Substance: BINIMETINIB

REACTIONS (1)
  - Skin papilloma [Not Recovered/Not Resolved]
